FAERS Safety Report 8049882-5 (Version None)
Quarter: 2012Q1

REPORT INFORMATION
  Report Type: 
  Country: None (occurrence: None)
  Receive Date: 20120117
  Receipt Date: 20120111
  Transmission Date: 20120608
  Serious: No
  Sender: FDA-Public Use
  Company Number: US-PFIZER INC-2012008967

PATIENT
  Sex: Female
  Weight: 64.399 kg

DRUGS (1)
  1. IBUPROFEN (ADVIL) [Suspect]
     Indication: PAIN
     Dosage: UNK, AS NEEDED
     Route: 048

REACTIONS (4)
  - URTICARIA [None]
  - PRURITUS [None]
  - SWELLING FACE [None]
  - DYSPNOEA [None]
